FAERS Safety Report 9787559 (Version 2)
Quarter: 2014Q1

REPORT INFORMATION
  Report Type: Spontaneous
  Country: IT (occurrence: IT)
  Receive Date: 20131230
  Receipt Date: 20140120
  Transmission Date: 20141002
  Serious: Yes (Other)
  Sender: FDA-Public Use
  Company Number: IT-ROCHE-1326688

PATIENT
  Age: 58 Year
  Sex: Female
  Weight: 78 kg

DRUGS (8)
  1. HERCEPTIN [Suspect]
     Indication: METASTASES TO BREAST
     Route: 042
     Dates: start: 20131021, end: 20131021
  2. FUROSEMIDE [Concomitant]
     Route: 048
  3. ENALAPRIL [Concomitant]
     Route: 048
  4. PANTOPRAZOLE [Concomitant]
     Route: 048
  5. BROMAZEPAM [Concomitant]
     Route: 048
  6. ZOLPIDEM HEMITARTRATE [Concomitant]
     Route: 048
  7. METOCLOPRAMIDE [Concomitant]
     Route: 048
  8. POTASSIUM CHLORIDE [Concomitant]
     Route: 048

REACTIONS (5)
  - Hypersensitivity [Recovered/Resolved]
  - Pyrexia [Recovered/Resolved]
  - Chills [Recovered/Resolved]
  - Urticaria [Recovered/Resolved]
  - Hypotension [Recovered/Resolved]
